FAERS Safety Report 19186277 (Version 1)
Quarter: 2021Q2

REPORT INFORMATION
  Report Type: Spontaneous
  Country: US (occurrence: US)
  Receive Date: 20210427
  Receipt Date: 20210427
  Transmission Date: 20210717
  Serious: No
  Sender: FDA-Public Use
  Company Number: US-TAKEDA-2021TUS026449

PATIENT
  Sex: Female

DRUGS (5)
  1. TRINTELLIX [Suspect]
     Active Substance: VORTIOXETINE HYDROBROMIDE
     Indication: POST-TRAUMATIC STRESS DISORDER
     Dosage: 5 MILLIGRAM
     Route: 065
  2. TRINTELLIX [Suspect]
     Active Substance: VORTIOXETINE HYDROBROMIDE
     Indication: ANXIETY
     Dosage: 10 MILLIGRAM
     Route: 065
     Dates: start: 20210420
  3. NEFAZODONE [Concomitant]
     Active Substance: NEFAZODONE
     Indication: POST-TRAUMATIC STRESS DISORDER
     Dosage: 200 MILLIGRAM, BID
     Route: 065
  4. NEFAZODONE [Concomitant]
     Active Substance: NEFAZODONE
     Indication: ANXIETY
     Dosage: 150 MILLIGRAM, BID
     Route: 065
     Dates: end: 20210420
  5. XANAX [Concomitant]
     Active Substance: ALPRAZOLAM
     Indication: ANXIETY
     Dosage: 1 MILLIGRAM
     Route: 065

REACTIONS (4)
  - Palpitations [Unknown]
  - Blood pressure increased [Unknown]
  - Heart rate increased [Unknown]
  - Off label use [Unknown]

NARRATIVE: CASE EVENT DATE: 20210423
